FAERS Safety Report 17651098 (Version 3)
Quarter: 2020Q2

REPORT INFORMATION
  Report Type: Spontaneous
  Country: GB (occurrence: GB)
  Receive Date: 20200408
  Receipt Date: 20200615
  Transmission Date: 20200713
  Serious: Yes (Other)
  Sender: FDA-Public Use
  Company Number: GB-UCBSA-2020014549

PATIENT
  Age: 14 Year
  Sex: Male
  Weight: 41.8 kg

DRUGS (8)
  1. NEUPRO [Suspect]
     Active Substance: ROTIGOTINE
     Indication: MOTOR DYSFUNCTION
     Dosage: 1 MILLIGRAM, ONCE DAILY (QD)
     Dates: start: 202003, end: 202003
  2. NEUPRO [Suspect]
     Active Substance: ROTIGOTINE
     Dosage: 6 MILLIGRAM, ONCE DAILY (QD)
     Dates: start: 2020
  3. NEUPRO [Suspect]
     Active Substance: ROTIGOTINE
     Dosage: 4 MILLIGRAM, ONCE DAILY (QD)
     Dates: start: 2020, end: 202004
  4. NEUPRO [Suspect]
     Active Substance: ROTIGOTINE
     Indication: BRADYKINESIA
     Dosage: 3 MILLIGRAM, ONCE DAILY (QD)
     Dates: start: 202003, end: 202003
  5. NEUPRO [Suspect]
     Active Substance: ROTIGOTINE
     Indication: DYSTONIA
     Dosage: 2 MILLIGRAM, ONCE DAILY (QD)
     Dates: start: 202003, end: 202003
  6. NEUPRO [Suspect]
     Active Substance: ROTIGOTINE
     Indication: OFF LABEL USE
     Dosage: 5 MILLIGRAM, ONCE DAILY (QD)
     Dates: start: 202003, end: 2020
  7. NEUPRO [Suspect]
     Active Substance: ROTIGOTINE
     Indication: BALANCE DISORDER
     Dosage: 4 MILLIGRAM, ONCE DAILY (QD)
     Dates: start: 202003, end: 202003
  8. NEUPRO [Suspect]
     Active Substance: ROTIGOTINE
     Dosage: 5 MILLIGRAM, ONCE DAILY (QD)
     Dates: start: 2020, end: 2020

REACTIONS (2)
  - Epistaxis [Not Recovered/Not Resolved]
  - Off label use [Unknown]

NARRATIVE: CASE EVENT DATE: 202003
